FAERS Safety Report 24129218 (Version 2)
Quarter: 2024Q3

REPORT INFORMATION
  Report Type: Spontaneous
  Country: US (occurrence: US)
  Receive Date: 20240723
  Receipt Date: 20240827
  Transmission Date: 20241016
  Serious: Yes (Other)
  Sender: APELLIS PHARMACEUTICALS
  Company Number: US-APELLIS PHARMACEUTICALS-APL-2024-003579

PATIENT

DRUGS (1)
  1. SYFOVRE [Suspect]
     Active Substance: PEGCETACOPLAN
     Indication: Dry age-related macular degeneration
     Dosage: OD
     Route: 031
     Dates: start: 20231227

REACTIONS (12)
  - Macular degeneration [Unknown]
  - Iris haemorrhage [Recovered/Resolved]
  - Conjunctival hyperaemia [Unknown]
  - Iris neovascularisation [Unknown]
  - Blindness [Unknown]
  - Corneal oedema [Unknown]
  - Retinal vasculitis [Unknown]
  - Iritis [Unknown]
  - Retinal haemorrhage [Unknown]
  - Vitreous opacities [Unknown]
  - Intraocular pressure increased [Unknown]
  - Hyphaema [Recovered/Resolved]

NARRATIVE: CASE EVENT DATE: 20240105
